FAERS Safety Report 24787850 (Version 3)
Quarter: 2025Q1

REPORT INFORMATION
  Report Type: Spontaneous
  Country: FR (occurrence: FR)
  Receive Date: 20241230
  Receipt Date: 20250121
  Transmission Date: 20250409
  Serious: Yes (Other)
  Sender: ORGANON
  Company Number: FR-ORGANON-O2412FRA001726

PATIENT
  Age: 66 Year
  Sex: Female

DRUGS (5)
  1. SINEMET [Suspect]
     Active Substance: CARBIDOPA\LEVODOPA
     Indication: Parkinson^s disease
     Route: 048
     Dates: start: 202411, end: 202411
  2. ENTACAPONE [Concomitant]
     Active Substance: ENTACAPONE
     Route: 048
  3. PRAMIPEXOLE [Concomitant]
     Active Substance: PRAMIPEXOLE
     Route: 048
  4. BENSERAZIDE HYDROCHLORIDE\LEVODOPA [Concomitant]
     Active Substance: BENSERAZIDE HYDROCHLORIDE\LEVODOPA
     Route: 048
  5. AMANTADINE HYDROCHLORIDE [Concomitant]
     Active Substance: AMANTADINE HYDROCHLORIDE
     Route: 048

REACTIONS (3)
  - Immobile [Recovered/Resolved]
  - Pain [Recovered/Resolved]
  - Akinesia [Recovered/Resolved]

NARRATIVE: CASE EVENT DATE: 20241101
